FAERS Safety Report 7631288-1 (Version None)
Quarter: 2011Q3

REPORT INFORMATION
  Report Type: 
  Country: None (occurrence: None)
  Receive Date: 20110715
  Receipt Date: 20110630
  Transmission Date: 20111222
  Serious: Yes (Hospitalization)
  Sender: FDA-Public Use
  Company Number: TPA2011A03650

PATIENT
  Age: 80 Year
  Sex: Female

DRUGS (11)
  1. ATROVENT [Concomitant]
  2. DEXILANT [Suspect]
     Indication: GASTRIC DISORDER
     Dosage: 60 MG, 1 IN 1 D, PER ORAL
     Route: 048
     Dates: start: 20110307
  3. CRESTOR [Concomitant]
  4. SYMBICORT [Concomitant]
  5. WELCOR (COLESEVELAM HYDROCHLORIDE) [Concomitant]
  6. SINGULAIR [Concomitant]
  7. ASPIRIN [Concomitant]
  8. LISINOPRIL [Suspect]
     Indication: HYPERTENSION
     Dosage: 10 MG, 1 IN 1 D, PER ORAL
     Route: 048
     Dates: start: 20110307
  9. PRADAXA [Suspect]
     Indication: ATRIAL FIBRILLATION
     Dosage: 150 MG, 2 IN 1 D, PER ORAL
     Route: 048
     Dates: start: 20110307
  10. LASIX [Concomitant]
  11. MULTIVITAMIN (ERGOCALCIFEROL ASCORBIC ACID, PYRIDOXINE HYDROCHLORIDE, [Concomitant]

REACTIONS (3)
  - HEMIPARESIS [None]
  - BALANCE DISORDER [None]
  - CONVULSION [None]
